FAERS Safety Report 24652284 (Version 1)
Quarter: 2024Q4

REPORT INFORMATION
  Report Type: Report from Study
  Country: TW (occurrence: TW)
  Receive Date: 20241122
  Receipt Date: 20241122
  Transmission Date: 20250115
  Serious: Yes (Other)
  Sender: ROCHE
  Company Number: TW-002147023-NVSC2024TW054329

PATIENT
  Age: 74 Year
  Sex: Male

DRUGS (1)
  1. LUCENTIS [Suspect]
     Active Substance: RANIBIZUMAB
     Indication: Retinal vein occlusion
     Dosage: 0.5 MG
     Route: 047

REACTIONS (5)
  - Eye oedema [Unknown]
  - Visual acuity reduced [Unknown]
  - Colour vision tests abnormal [Unknown]
  - Retinal disorder [Unknown]
  - Corneal diameter increased [Unknown]

NARRATIVE: CASE EVENT DATE: 20240301
